FAERS Safety Report 15828024 (Version 3)
Quarter: 2019Q1

REPORT INFORMATION
  Report Type: Spontaneous
  Country: AZ (occurrence: AZ)
  Receive Date: 20190115
  Receipt Date: 20190328
  Transmission Date: 20190417
  Serious: Yes (Other)
  Sender: FDA-Public Use
  Company Number: AZ-NOVOPROD-640626

PATIENT
  Age: 27 Year
  Sex: Female
  Weight: 57 kg

DRUGS (4)
  1. LANTUS [Concomitant]
     Active Substance: INSULIN GLARGINE
     Dosage: 18 U IN THE EVENING
     Route: 065
  2. LEVEMIR [Suspect]
     Active Substance: INSULIN DETEMIR
     Dosage: 26 U, QD (11 U IN THE MORNING AND 15 U IN THE EVENING)
     Route: 065
     Dates: start: 20181128
  3. LEVEMIR [Suspect]
     Active Substance: INSULIN DETEMIR
     Indication: TYPE 1 DIABETES MELLITUS
     Dosage: UNK (20-22 U IN THE MORNING)
     Route: 065
  4. NOVORAPID [Suspect]
     Active Substance: INSULIN ASPART
     Indication: TYPE 1 DIABETES MELLITUS
     Dosage: 10 U, TID
     Route: 065
     Dates: start: 20181128

REACTIONS (4)
  - Accident [Unknown]
  - Hypoglycaemia [Recovered/Resolved]
  - Abortion induced [Unknown]
  - Exposure during pregnancy [Recovered/Resolved]

NARRATIVE: CASE EVENT DATE: 20181128
